FAERS Safety Report 9999705 (Version 1)
Quarter: 2014Q1

REPORT INFORMATION
  Report Type: Spontaneous
  Country: US (occurrence: US)
  Receive Date: 20140312
  Receipt Date: 20140312
  Transmission Date: 20141002
  Serious: Yes (Other)
  Sender: FDA-Public Use
  Company Number: US-ASTRAZENECA-2014SE15570

PATIENT
  Age: 79 Year
  Sex: Male
  Weight: 79.4 kg

DRUGS (12)
  1. LISINOPRIL [Suspect]
     Indication: BLOOD PRESSURE ABNORMAL
     Route: 048
     Dates: start: 201310
  2. METOPROLOL SUCCINATE ER [Suspect]
     Indication: BLOOD PRESSURE ABNORMAL
     Route: 048
  3. BRILINTA [Suspect]
     Indication: STENT PLACEMENT
     Route: 048
     Dates: start: 201310
  4. ASPIRIN [Concomitant]
     Indication: STENT PLACEMENT
     Route: 048
     Dates: start: 201310
  5. KLOR CON [Concomitant]
     Indication: MINERAL SUPPLEMENTATION
     Route: 048
  6. AMILORIDE HCTZ [Concomitant]
     Indication: DIURETIC THERAPY
     Dosage: HALF OF A 5 SLASH 50 DAILY
     Route: 048
  7. SIMVASTATIN [Concomitant]
     Indication: BLOOD CHOLESTEROL ABNORMAL
     Route: 048
  8. PLAVIX [Concomitant]
     Dates: start: 200601
  9. PLAVIX [Concomitant]
     Dates: start: 200901
  10. PLAVIX [Concomitant]
     Dates: start: 201101
  11. AGRONOX [Concomitant]
     Dates: start: 200701
  12. AGRONOX [Concomitant]
     Dates: start: 200901

REACTIONS (3)
  - Coronary artery occlusion [Unknown]
  - Transient ischaemic attack [Unknown]
  - Haemorrhagic diathesis [Unknown]
